FAERS Safety Report 12184671 (Version 2)
Quarter: 2016Q1

REPORT INFORMATION
  Report Type: Spontaneous
  Country: KR (occurrence: KR)
  Receive Date: 20160316
  Receipt Date: 20160322
  Transmission Date: 20160526
  Serious: Yes (Hospitalization)
  Sender: FDA-Public Use
  Company Number: KR-JNJFOC-20160307350

PATIENT
  Age: 37 Year
  Sex: Male

DRUGS (1)
  1. INFLIXIMAB, RECOMBINANT [Suspect]
     Active Substance: INFLIXIMAB
     Indication: ANKYLOSING SPONDYLITIS
     Dosage: TOTAL DOSE: 3000 MG
     Route: 042
     Dates: start: 201203, end: 201305

REACTIONS (4)
  - Amyloidosis [Unknown]
  - Abdominal pain upper [Unknown]
  - Dyspepsia [Unknown]
  - Treatment failure [Unknown]
